FAERS Safety Report 7602992-6 (Version None)
Quarter: 2011Q3

REPORT INFORMATION
  Report Type: 
  Country: None (occurrence: None)
  Receive Date: 20110712
  Receipt Date: 20110613
  Transmission Date: 20111222
  Serious: No
  Sender: FDA-Public Use
  Company Number: A0931334A

PATIENT
  Age: 80 Year
  Sex: Male

DRUGS (8)
  1. CYANOCOBALAMIN [Concomitant]
  2. LISINOPRIL [Concomitant]
  3. VITAMIN TAB [Concomitant]
  4. FEXOFENADINE [Concomitant]
  5. METFORMIN HCL [Concomitant]
  6. NEXIUM [Concomitant]
  7. JALYN [Suspect]
     Dosage: 1CAP PER DAY
     Route: 048
     Dates: start: 20110609
  8. DICYCLOMINE [Concomitant]

REACTIONS (1)
  - MICTURITION URGENCY [None]
